FAERS Safety Report 15571110 (Version 1)
Quarter: 2018Q4

REPORT INFORMATION
  Report Type: Spontaneous
  Country: US (occurrence: US)
  Receive Date: 20181031
  Receipt Date: 20181031
  Transmission Date: 20190205
  Serious: Yes (Hospitalization, Other)
  Sender: FDA-Public Use
  Company Number: US-ASTRAZENECA-2018SF42090

PATIENT
  Sex: Male
  Weight: 79.4 kg

DRUGS (4)
  1. ALBUTEROL. [Concomitant]
     Active Substance: ALBUTEROL
     Indication: CHRONIC OBSTRUCTIVE PULMONARY DISEASE
     Dosage: 2.5MG/3ML IN, 2 TO 4 TIMES A DAY
     Route: 055
  2. DALIRESP [Suspect]
     Active Substance: ROFLUMILAST
     Indication: CHRONIC OBSTRUCTIVE PULMONARY DISEASE
     Dosage: 500.0UG ONCE/SINGLE ADMINISTRATION
     Route: 048
  3. PREDNISONE. [Concomitant]
     Active Substance: PREDNISONE
  4. BUDESONIDE. [Suspect]
     Active Substance: BUDESONIDE
     Indication: CHRONIC OBSTRUCTIVE PULMONARY DISEASE
     Dosage: 0.25MG/2ML ONCE A DAY IN THE MORNING
     Route: 055

REACTIONS (6)
  - Secretion discharge [Unknown]
  - Gait disturbance [Unknown]
  - Product administration error [Unknown]
  - Dyspnoea exertional [Unknown]
  - Pneumonia [Unknown]
  - Intentional product misuse [Unknown]
